FAERS Safety Report 5497103-X (Version None)
Quarter: 2007Q4

REPORT INFORMATION
  Report Type: 
  Country: None (occurrence: None)
  Receive Date: 20071025
  Receipt Date: 20071017
  Transmission Date: 20080405
  Serious: Yes (Other)
  Sender: FDA-Public Use
  Company Number: BR-ASTRAZENECA-2007UW18583

PATIENT
  Age: 34 Year
  Sex: Female

DRUGS (1)
  1. SYMBICORT [Suspect]
     Indication: ASTHMA
     Dosage: 80/4.5 UG QD
     Route: 055
     Dates: start: 20060201, end: 20070801

REACTIONS (2)
  - INTRA-UTERINE DEATH [None]
  - PREGNANCY [None]
